FAERS Safety Report 4885476-8 (Version None)
Quarter: 2005Q4

REPORT INFORMATION
  Report Type: 
  Country: None (occurrence: None)
  Receive Date: 20051216
  Receipt Date: 20041208
  Transmission Date: 20060501
  Serious: Yes (Other)
  Sender: FDA-Public Use
  Company Number: 2004108453

PATIENT
  Sex: Female

DRUGS (2)
  1. ZYRTEC-D 12 HOUR (PSEUDOPHEDRINE, CETIRIZINE) [Suspect]
     Indication: ILL-DEFINED DISORDER
  2. TELITHROMYCIN (TELITHROMYCIN) [Suspect]
     Indication: ILL-DEFINED DISORDER

REACTIONS (1)
  - ABDOMINAL PAIN [None]
